FAERS Safety Report 6408846-5 (Version None)
Quarter: 2009Q4

REPORT INFORMATION
  Report Type: 
  Country: None (occurrence: None)
  Receive Date: 20091019
  Receipt Date: 20091005
  Transmission Date: 20100525
  Serious: Yes (Death, Hospitalization, Other)
  Sender: FDA-Public Use
  Company Number: A-US2009-27831

PATIENT
  Age: 59 Year
  Sex: Female

DRUGS (4)
  1. VENTAVIS [Suspect]
     Indication: PULMONARY ARTERIAL HYPERTENSION
     Dosage: 20 UG, Q4H, RESPIRATORY; 15 UG, 3 X DAY, RESPIRATORY; 20 UG, 3X/DAY, RESPIRATORY
     Route: 055
  2. SILDENAFIL CITRATE [Concomitant]
  3. OXYGEN (OXYGEN) [Concomitant]
  4. DIURETICS [Concomitant]

REACTIONS (5)
  - DISEASE PROGRESSION [None]
  - HYPOXIA [None]
  - PAIN IN EXTREMITY [None]
  - PULMONARY HYPERTENSION [None]
  - VASCULITIC RASH [None]
